FAERS Safety Report 18707333 (Version 1)
Quarter: 2021Q1

REPORT INFORMATION
  Report Type: Spontaneous
  Country: IT (occurrence: IT)
  Receive Date: 20210106
  Receipt Date: 20210106
  Transmission Date: 20210419
  Serious: Yes (Hospitalization, Other)
  Sender: FDA-Public Use
  Company Number: IT-PFIZER INC-2021001986

PATIENT
  Age: 39 Year
  Sex: Male

DRUGS (2)
  1. ALPRAZOLAM. [Suspect]
     Active Substance: ALPRAZOLAM
     Dosage: 20 ML, SINGLE
     Route: 048
     Dates: start: 20201217, end: 20201217
  2. PAROXETINE. [Suspect]
     Active Substance: PAROXETINE
     Dosage: 120 MG, SINGLE
     Route: 048
     Dates: start: 20201217, end: 20201217

REACTIONS (3)
  - Suicide attempt [Unknown]
  - Intentional overdose [Recovering/Resolving]
  - Sopor [Recovering/Resolving]

NARRATIVE: CASE EVENT DATE: 20201217
